FAERS Safety Report 7785660-X (Version None)
Quarter: 2011Q3

REPORT INFORMATION
  Report Type: 
  Country: None (occurrence: None)
  Receive Date: 20110929
  Receipt Date: 20110929
  Transmission Date: 20111222
  Serious: Yes (Hospitalization, Other)
  Sender: FDA-Public Use
  Company Number: None

PATIENT
  Sex: Female

DRUGS (5)
  1. OXYGEN [Concomitant]
  2. LEVAQUIN [Suspect]
     Indication: LUNG DISORDER
     Dosage: 1 TABLET ONCE DAILY FOR A WEEK
     Route: 048
     Dates: start: 20100616, end: 20100623
  3. PREDNISONE [Concomitant]
     Route: 048
  4. ADVAIR DISKUS 100/50 [Concomitant]
  5. METFORMIN HCL [Concomitant]
     Route: 048

REACTIONS (24)
  - TENDONITIS [None]
  - SENSORY DISTURBANCE [None]
  - GASTROINTESTINAL DISORDER [None]
  - AMNESIA [None]
  - DISTURBANCE IN ATTENTION [None]
  - HEADACHE [None]
  - MUSCLE ATROPHY [None]
  - VOMITING [None]
  - VITREOUS FLOATERS [None]
  - INSOMNIA [None]
  - ANGIOEDEMA [None]
  - HYPOAESTHESIA [None]
  - NERVE INJURY [None]
  - ABDOMINAL PAIN UPPER [None]
  - NEUROPATHY PERIPHERAL [None]
  - VISION BLURRED [None]
  - DRY EYE [None]
  - CONFUSIONAL STATE [None]
  - PERONEAL NERVE PALSY [None]
  - EYE IRRITATION [None]
  - RASH ERYTHEMATOUS [None]
  - NAUSEA [None]
  - ABDOMINAL DISTENSION [None]
  - PALPITATIONS [None]
